FAERS Safety Report 4749879-4 (Version None)
Quarter: 2005Q3

REPORT INFORMATION
  Report Type: 
  Country: None (occurrence: None)
  Receive Date: 20050818
  Receipt Date: 20050802
  Transmission Date: 20060218
  Serious: Yes (Death, Hospitalization)
  Sender: FDA-Public Use
  Company Number: 2005001486

PATIENT
  Age: 63 Year
  Sex: Male

DRUGS (16)
  1. TARCEVA [Suspect]
     Indication: NON-SMALL CELL LUNG CANCER
     Dosage: 150 MG (QD (HELD 7/22/2005)), ORAL
     Route: 048
     Dates: start: 20050712
  2. ATENOLOL [Concomitant]
  3. HYDROCHLOROTHIAZIDE [Concomitant]
  4. SINEMET [Concomitant]
  5. AMANTADINE HCL [Concomitant]
  6. ACETYLSALICYLIC ACID SRT [Concomitant]
  7. ZOCOR [Concomitant]
  8. ALBUTEROL [Concomitant]
  9. CIMETIDINE [Concomitant]
  10. AMBIEN [Concomitant]
  11. MILK OF MAGNESIA TAB [Concomitant]
  12. ALUMINUM HYDROXIDE AND MAGNESIUM TRISILICATE [Concomitant]
  13. PROTONIX [Concomitant]
  14. ATIVAN [Concomitant]
  15. PERCOCET [Concomitant]
  16. TYLENOL [Concomitant]

REACTIONS (7)
  - HAEMATOCRIT DECREASED [None]
  - HAEMOGLOBIN DECREASED [None]
  - HAEMOPTYSIS [None]
  - HEPARIN-INDUCED THROMBOCYTOPENIA [None]
  - MALIGNANT NEOPLASM PROGRESSION [None]
  - PROTHROMBIN TIME PROLONGED [None]
  - PULMONARY EMBOLISM [None]
